FAERS Safety Report 20844129 (Version 2)
Quarter: 2022Q4

REPORT INFORMATION
  Report Type: Report from Study
  Country: DE (occurrence: DE)
  Receive Date: 20220518
  Receipt Date: 20221208
  Transmission Date: 20230113
  Serious: Yes (Hospitalization)
  Sender: FDA-Public Use
  Company Number: DE-JNJFOC-20220532147

PATIENT
  Age: 5 Decade
  Sex: Male

DRUGS (5)
  1. SIMPONI [Suspect]
     Active Substance: GOLIMUMAB
     Indication: Psoriatic arthropathy
     Route: 058
     Dates: start: 20181022
  2. METHOTREXATE [Suspect]
     Active Substance: METHOTREXATE
     Indication: Psoriatic arthropathy
     Route: 065
     Dates: start: 20210219
  3. ADALIMUMAB [Concomitant]
     Active Substance: ADALIMUMAB
     Indication: Product used for unknown indication
     Dates: start: 20190403, end: 20190403
  4. XELJANZ [Concomitant]
     Active Substance: TOFACITINIB CITRATE
     Indication: Product used for unknown indication
     Dates: start: 20190917, end: 20200215
  5. STELARA [Concomitant]
     Active Substance: USTEKINUMAB

REACTIONS (8)
  - Pain [Unknown]
  - Chalazion [Unknown]
  - Dry throat [Unknown]
  - Memory impairment [Unknown]
  - Vision blurred [Unknown]
  - Intervertebral disc protrusion [Unknown]
  - Epicondylitis [Unknown]
  - Conjunctivitis [Unknown]

NARRATIVE: CASE EVENT DATE: 20200804
